FAERS Safety Report 14000160 (Version 3)
Quarter: 2018Q3

REPORT INFORMATION
  Report Type: Report from Study
  Country: CO (occurrence: CO)
  Receive Date: 20170922
  Receipt Date: 20180807
  Transmission Date: 20181010
  Serious: Yes (Other)
  Sender: FDA-Public Use
  Company Number: PHHY2017CO138149

PATIENT
  Sex: Female
  Weight: 65 kg

DRUGS (6)
  1. COSENTYX [Suspect]
     Active Substance: SECUKINUMAB
     Indication: RHEUMATOID ARTHRITIS
     Dosage: 300 MG, QMO
     Route: 058
     Dates: start: 201702
  2. COSENTYX [Suspect]
     Active Substance: SECUKINUMAB
     Indication: PSORIASIS
     Dosage: 1 DF (300 MG / 2 ML), UNK
     Route: 058
     Dates: start: 20160914
  3. METOPROLOL. [Concomitant]
     Active Substance: METOPROLOL
     Indication: PRODUCT USED FOR UNKNOWN INDICATION
     Dosage: UNK
     Route: 065
     Dates: start: 201502
  4. HYDROCHLOROTHIAZIDE. [Concomitant]
     Active Substance: HYDROCHLOROTHIAZIDE
     Indication: PRODUCT USED FOR UNKNOWN INDICATION
     Dosage: UNK
     Route: 065
     Dates: start: 201502
  5. COSENTYX [Suspect]
     Active Substance: SECUKINUMAB
     Dosage: 300 MG, QMO
     Route: 058
     Dates: start: 201707
  6. ACETYLSALICYLIC ACID [Concomitant]
     Active Substance: ASPIRIN
     Indication: PRODUCT USED FOR UNKNOWN INDICATION
     Dosage: UNK
     Route: 065
     Dates: start: 201502

REACTIONS (13)
  - Dyspnoea [Not Recovered/Not Resolved]
  - Hepatitis [Not Recovered/Not Resolved]
  - Fatigue [Not Recovered/Not Resolved]
  - Eosinophilia [Unknown]
  - Productive cough [Not Recovered/Not Resolved]
  - Arthralgia [Unknown]
  - Pulmonary mass [Unknown]
  - Transaminases increased [Unknown]
  - Lung neoplasm [Unknown]
  - Hepatic mass [Unknown]
  - Cyst [Not Recovered/Not Resolved]
  - Product use in unapproved indication [Unknown]
  - Weight decreased [Not Recovered/Not Resolved]
